FAERS Safety Report 7574836-2 (Version None)
Quarter: 2011Q2

REPORT INFORMATION
  Report Type: 
  Country: None (occurrence: None)
  Receive Date: 20110627
  Receipt Date: 20110624
  Transmission Date: 20111010
  Serious: No
  Sender: FDA-Public Use
  Company Number: US-PFIZER INC-2011107069

PATIENT
  Sex: Female
  Weight: 86.168 kg

DRUGS (2)
  1. CHANTIX [Suspect]
     Indication: SMOKING CESSATION THERAPY
     Dosage: 0.5 MG, 1X/DAY
     Route: 048
     Dates: start: 20110412, end: 20110518
  2. MULTI-VITAMINS [Concomitant]
     Dosage: UNK

REACTIONS (5)
  - NAUSEA [None]
  - DYSPEPSIA [None]
  - PRURITUS [None]
  - URTICARIA [None]
  - ANXIETY [None]
